FAERS Safety Report 7715356-1 (Version None)
Quarter: 2011Q3

REPORT INFORMATION
  Report Type: 
  Country: None (occurrence: None)
  Receive Date: 20110829
  Receipt Date: 20110825
  Transmission Date: 20111222
  Serious: Yes (Other)
  Sender: FDA-Public Use
  Company Number: US-AMGEN-USASP2011017924

PATIENT
  Age: 57 Year
  Sex: Male

DRUGS (3)
  1. ENBREL [Suspect]
     Indication: RHEUMATOID ARTHRITIS
     Dosage: 50 MG, QWK
     Dates: start: 20110331
  2. ENBREL [Suspect]
     Dosage: 50 MG, QWK
     Dates: start: 20110331, end: 20110529
  3. TREXALL [Concomitant]
     Dosage: UNK
     Dates: start: 20060101

REACTIONS (12)
  - NASAL CONGESTION [None]
  - FOREIGN BODY SENSATION IN EYES [None]
  - LIP DISORDER [None]
  - WAIST CIRCUMFERENCE INCREASED [None]
  - LOCAL SWELLING [None]
  - HEART RATE INCREASED [None]
  - BURNING SENSATION [None]
  - ARTHRALGIA [None]
  - DYSPNOEA [None]
  - SOFT TISSUE MASS [None]
  - MYALGIA [None]
  - PAIN [None]
